FAERS Safety Report 21256874 (Version 1)
Quarter: 2022Q3

REPORT INFORMATION
  Report Type: Spontaneous
  Country: US (occurrence: US)
  Receive Date: 20220826
  Receipt Date: 20220826
  Transmission Date: 20221027
  Serious: No
  Sender: FDA-Public Use
  Company Number: US-ORGANON-O2208USA001577

PATIENT
  Age: 46 Year
  Sex: Male

DRUGS (14)
  1. REMERON [Suspect]
     Active Substance: MIRTAZAPINE
     Indication: Agitation
     Dosage: UNK
  2. REMERON [Suspect]
     Active Substance: MIRTAZAPINE
     Indication: Anxiety
  3. REMERON [Suspect]
     Active Substance: MIRTAZAPINE
     Indication: Sleep disorder
  4. ZIPRASIDONE [Concomitant]
     Active Substance: ZIPRASIDONE
     Indication: Aggression
     Dosage: 40 MILLIGRAM, TWICE DAILY
     Dates: start: 2020
  5. QUETIAPINE [Concomitant]
     Active Substance: QUETIAPINE
     Indication: Aggression
     Dosage: 100 MILLIGRAM, DAILY
     Dates: start: 2020
  6. VALPROIC ACID [Concomitant]
     Active Substance: VALPROIC ACID
     Dosage: 500 MILLIGRAM, THREE TIMES DAILY
     Dates: start: 2020, end: 2020
  7. VALPROIC ACID [Concomitant]
     Active Substance: VALPROIC ACID
     Dosage: INCREASED TO 500 MG AT BREAKFAST AND LUNCH AND 1000 MG AT BEDTIME
     Dates: start: 2020, end: 2020
  8. VALPROIC ACID [Concomitant]
     Active Substance: VALPROIC ACID
     Dosage: 500 MILLIGRAM, TWICE DAILY
     Dates: start: 2020
  9. SERTRALINE [Concomitant]
     Active Substance: SERTRALINE HYDROCHLORIDE
     Dosage: 50 MILLIGRAM, DAILY
     Dates: start: 2020
  10. BENZTROPINE [Concomitant]
     Active Substance: BENZTROPINE
     Indication: Tremor
     Dosage: 0.5 MILLIGRAM, TWICE DAILY
     Dates: start: 2020, end: 2020
  11. BENZTROPINE [Concomitant]
     Active Substance: BENZTROPINE
     Dosage: 0.5 MILLIGRAM, AT BEDTIME
     Dates: start: 2020
  12. METHADONE [Concomitant]
     Active Substance: METHADONE HYDROCHLORIDE
     Indication: Drug use disorder
     Dosage: UNK
  13. LORAZEPAM [Concomitant]
     Active Substance: LORAZEPAM
     Dosage: 1 MILLIGRAM, EVERY 8 HOURS
     Dates: start: 2020, end: 2020
  14. LORAZEPAM [Concomitant]
     Active Substance: LORAZEPAM
     Dosage: 0.5 MILLIGRAM, EVERY 8 HOURS
     Dates: start: 2020

REACTIONS (1)
  - Product use in unapproved indication [Unknown]
